FAERS Safety Report 9521396 (Version 1)
Quarter: 2013Q3

REPORT INFORMATION
  Report Type: Spontaneous
  Country: US (occurrence: None)
  Receive Date: 20130911
  Receipt Date: 20130911
  Transmission Date: 20140515
  Serious: No
  Sender: FDA-Public Use
  Company Number: AEUSA201200499

PATIENT
  Age: 49 Year
  Sex: Female
  Weight: 82 kg

DRUGS (16)
  1. GAMUNEX-C (10 PCT) [Suspect]
     Indication: BLOOD IMMUNOGLOBULIN G
     Route: 042
     Dates: start: 201207
  2. ALBUTEROL [Concomitant]
  3. BENTYL [Concomitant]
  4. CLONIDINE [Concomitant]
  5. COMPAZINE [Concomitant]
  6. DEXILANT [Concomitant]
  7. GLUCOPHAGE [Concomitant]
  8. GLUCOVANCE [Concomitant]
  9. METOPOLOL [Concomitant]
  10. NASONEX [Concomitant]
  11. OXYCONTIN [Concomitant]
  12. PRAVASTATIN [Suspect]
  13. ROBITUSSIN AC [Concomitant]
  14. SOMA [Concomitant]
  15. SPIRONOLACTONE [Concomitant]
  16. TRIAMCINOLONE [Concomitant]

REACTIONS (3)
  - Glycosylated haemoglobin increased [None]
  - Blood cholesterol increased [None]
  - Hyperlipidaemia [None]
